FAERS Safety Report 14910200 (Version 1)
Quarter: 2018Q2

REPORT INFORMATION
  Report Type: Spontaneous
  Country: US (occurrence: US)
  Receive Date: 20180517
  Receipt Date: 20180517
  Transmission Date: 20180711
  Serious: Yes (Life-Threatening, Hospitalization)
  Sender: FDA-Public Use
  Company Number: US-TEVA-2018-US-892522

PATIENT
  Age: 22 Month
  Sex: Female

DRUGS (4)
  1. CLONIDINE CONTAINING COMPOUNDED TOPICAL ANALGESIC CREAM [Suspect]
     Active Substance: CLONIDINE
     Indication: ACCIDENTAL OVERDOSE
     Route: 002
  2. CLONIDINE CONTAINING COMPOUNDED TOPICAL ANALGESIC CREAM [Suspect]
     Active Substance: CLONIDINE
     Indication: ACCIDENTAL OVERDOSE
     Route: 061
  3. CLONIDINE CONTAINING COMPOUNDED TOPICAL ANALGESIC CREAM [Suspect]
     Active Substance: CLONIDINE
     Indication: ACCIDENTAL OVERDOSE
     Route: 050
  4. CLONIDINE CONTAINING COMPOUNDED TOPICAL ANALGESIC CREAM [Suspect]
     Active Substance: CLONIDINE
     Indication: ACCIDENTAL OVERDOSE
     Route: 048

REACTIONS (20)
  - Hypotension [Recovered/Resolved]
  - Dry skin [Recovered/Resolved]
  - Atrioventricular block first degree [Recovered/Resolved]
  - Agitation [None]
  - Hypothermia [Recovered/Resolved]
  - Pallor [Recovered/Resolved]
  - Electrocardiogram T wave inversion [Recovered/Resolved]
  - Accidental overdose [None]
  - Toxicity to various agents [Recovered/Resolved]
  - Apnoea [Recovered/Resolved]
  - Miosis [Recovered/Resolved]
  - Somnolence [Recovered/Resolved]
  - Altered state of consciousness [Recovered/Resolved]
  - Mental status changes [Recovered/Resolved]
  - Overdose [Recovered/Resolved]
  - Skin warm [Recovered/Resolved]
  - Accidental exposure to product by child [Recovered/Resolved]
  - Sinus bradycardia [Recovered/Resolved]
  - Hyporeflexia [Recovered/Resolved]
  - Coma [Recovered/Resolved]
